FAERS Safety Report 4902010-4 (Version None)
Quarter: 2006Q1

REPORT INFORMATION
  Report Type: 
  Country: None (occurrence: None)
  Receive Date: 20060202
  Receipt Date: 20060202
  Transmission Date: 20060701
  Serious: No
  Sender: FDA-Public Use
  Company Number: None

PATIENT
  Sex: Male
  Weight: 73.4827 kg

DRUGS (1)
  1. UROXATRAL [Suspect]
     Indication: PROSTATISM
     Dosage: 10 MG QPM WITH FOOD PO
     Route: 048
     Dates: start: 20040614, end: 20060201

REACTIONS (1)
  - AMBLYOPIA [None]
